FAERS Safety Report 10573234 (Version 2)
Quarter: 2016Q1

REPORT INFORMATION
  Report Type: Spontaneous
  Country: US (occurrence: US)
  Receive Date: 20141110
  Receipt Date: 20160302
  Transmission Date: 20160525
  Serious: Yes (Hospitalization, Other)
  Sender: FDA-Public Use
  Company Number: US-BAYER-2014-163688

PATIENT
  Age: 24 Year
  Sex: Female

DRUGS (9)
  1. MIRENA [Suspect]
     Active Substance: LEVONORGESTREL
     Indication: CONTRACEPTION
     Dosage: 20 MCG/24HR, CONT
     Route: 015
     Dates: start: 20070319, end: 20071109
  2. SIMETHICONE (DIMETHICONE) [Concomitant]
     Active Substance: DIMETHICONE
     Indication: FLATULENCE
     Dosage: 160 MG, QID
     Dates: start: 20071109
  3. AMOXICILLIN. [Concomitant]
     Active Substance: AMOXICILLIN
     Dosage: UNK
     Dates: start: 20071109
  4. ZOLPIDEM [Concomitant]
     Active Substance: ZOLPIDEM\ZOLPIDEM TARTRATE
     Indication: INSOMNIA
     Dosage: 5-10 MG, HS
     Dates: start: 20071109
  5. OXYCODONE [Concomitant]
     Active Substance: OXYCODONE
     Dosage: UNK
     Dates: start: 20071109
  6. ORTHO TRI CYCLEN [Concomitant]
     Active Substance: ETHINYL ESTRADIOL\NORGESTIMATE
     Indication: CONTRACEPTION
     Dosage: UNK
     Dates: start: 20071109
  7. BISACODYL. [Concomitant]
     Active Substance: BISACODYL
     Dosage: 10 MG ONE TIME ONLY, PRN
     Dates: start: 20071109
  8. ONDASETRON [Concomitant]
     Active Substance: ONDANSETRON
     Dosage: UNK
     Dates: start: 20071109
  9. NALOXONE [Concomitant]
     Active Substance: NALOXONE
     Dosage: UNK
     Dates: start: 20071109

REACTIONS (15)
  - Infertility female [None]
  - Device issue [None]
  - Medical device discomfort [None]
  - Fear of pregnancy [None]
  - Uterine perforation [None]
  - Injury [None]
  - Pain [None]
  - Anxiety [None]
  - Dyspareunia [None]
  - Emotional distress [None]
  - Medical device pain [None]
  - Procedural pain [None]
  - Device failure [None]
  - Uterine scar [None]
  - Depression [None]

NARRATIVE: CASE EVENT DATE: 20071109
